FAERS Safety Report 8693979 (Version 3)
Quarter: 2012Q4

REPORT INFORMATION
  Report Type: 
  Country: US (occurrence: US)
  Receive Date: 20120731
  Receipt Date: 20121221
  Transmission Date: 20130627
  Serious: No
  Sender: FDA-Public Use
  Company Number: US-ASTRAZENECA-2012SE47319

PATIENT
  Age: 46 Year
  Sex: Female

DRUGS (5)
  1. NEXIUM [Suspect]
     Route: 048
  2. NEXIUM [Suspect]
     Dosage: 3-4 DF
     Route: 048
  3. NEXIUM [Suspect]
     Route: 048
  4. NEXIUM [Suspect]
     Route: 048
  5. PRILOSEC OTC [Suspect]
     Route: 048

REACTIONS (7)
  - Limb discomfort [Unknown]
  - Neuropathy peripheral [Unknown]
  - Nerve injury [Unknown]
  - Dyspepsia [Unknown]
  - Vomiting [Unknown]
  - Intentional drug misuse [Unknown]
  - Drug ineffective [Unknown]
